FAERS Safety Report 7842717 (Version 5)
Quarter: 2014Q4

REPORT INFORMATION
  Report Type: Report from Study
  Country: US (occurrence: US)
  Receive Date: 20110307
  Receipt Date: 20141224
  Transmission Date: 20150529
  Serious: Yes (Hospitalization)
  Sender: FDA-Public Use
  Company Number: US-BIOGENIDEC-2011BI007071

PATIENT
  Age: 63 Year
  Sex: Female

DRUGS (2)
  1. AVONEX [Suspect]
     Active Substance: INTERFERON BETA-1A
     Indication: MULTIPLE SCLEROSIS
     Route: 030
     Dates: start: 20020125
  2. AVONEX [Suspect]
     Active Substance: INTERFERON BETA-1A
     Indication: MULTIPLE SCLEROSIS
     Route: 030
     Dates: start: 20000101

REACTIONS (15)
  - Cardiac failure congestive [Recovered/Resolved]
  - Arterial injury [Recovered/Resolved]
  - Procedural haemorrhage [Recovered/Resolved]
  - Pulmonary hypertension [Recovered/Resolved]
  - Dyspnoea [Not Recovered/Not Resolved]
  - Respiratory failure [Recovered/Resolved]
  - Loss of consciousness [Recovered/Resolved]
  - Carcinoid tumour of the stomach [Recovered/Resolved]
  - Sepsis [Recovered/Resolved]
  - Carcinoid tumour pulmonary [Recovered/Resolved]
  - Procedural complication [Recovered/Resolved]
  - Oesophageal dilation procedure [Recovered/Resolved]
  - Cellulitis [Recovered/Resolved]
  - Atrioventricular block [Not Recovered/Not Resolved]
  - Pulmonary mass [Not Recovered/Not Resolved]

NARRATIVE: CASE EVENT DATE: 201012
